FAERS Safety Report 7692824-2 (Version None)
Quarter: 2011Q3

REPORT INFORMATION
  Report Type: 
  Country: None (occurrence: None)
  Receive Date: 20110819
  Receipt Date: 20110811
  Transmission Date: 20111222
  Serious: Yes (Hospitalization, Other)
  Sender: FDA-Public Use
  Company Number: US-ELI_LILLY_AND_COMPANY-US201108004481

PATIENT
  Sex: Female

DRUGS (11)
  1. NOVOLOG [Concomitant]
     Indication: TYPE 2 DIABETES MELLITUS
  2. SODIUM CHLORIDE [Concomitant]
     Indication: OBESITY SURGERY
     Dosage: UNK
     Route: 042
     Dates: start: 20090101
  3. HUMALOG [Suspect]
     Dosage: 15 U, OTHER
  4. HUMALOG [Suspect]
     Dosage: 15 U, OTHER
  5. HUMALOG [Suspect]
     Indication: TYPE 2 DIABETES MELLITUS
     Dosage: 10 U, OTHER
  6. HUMALOG [Suspect]
     Dosage: 10 U, OTHER
  7. METFORMIN [Concomitant]
     Dosage: UNK
  8. ORAL ANTIDIABETICS [Concomitant]
     Indication: TYPE 2 DIABETES MELLITUS
  9. LANTUS [Concomitant]
     Dosage: 15 U, QD
  10. HUMALOG [Suspect]
     Dosage: 15 U, OTHER
  11. HUMALOG [Suspect]
     Dosage: 10 U, OTHER

REACTIONS (10)
  - VOMITING [None]
  - CONTUSION [None]
  - PROCEDURAL COMPLICATION [None]
  - BLOOD GLUCOSE DECREASED [None]
  - CARDIAC FAILURE [None]
  - HEART RATE DECREASED [None]
  - OBESITY SURGERY [None]
  - DEHYDRATION [None]
  - INJECTION SITE HAEMORRHAGE [None]
  - BLOOD GLUCOSE FLUCTUATION [None]
